FAERS Safety Report 4513204-4 (Version None)
Quarter: 2004Q4

REPORT INFORMATION
  Report Type: 
  Country: None (occurrence: None)
  Receive Date: 20041124
  Receipt Date: 20041122
  Transmission Date: 20050328
  Serious: Yes (Life-Threatening, Hospitalization)
  Sender: FDA-Public Use
  Company Number: 2004-BP-12060BP

PATIENT
  Age: 78 Year
  Sex: Female

DRUGS (10)
  1. MICARDIS [Suspect]
     Indication: CEREBROVASCULAR ACCIDENT PROPHYLAXIS
     Dates: start: 20030103, end: 20040813
  2. MICARDIS [Suspect]
     Indication: PROPHYLAXIS
     Dates: start: 20030103, end: 20040813
  3. RAMIPRIL TABLETS (NR) [Suspect]
     Indication: CEREBROVASCULAR ACCIDENT PROPHYLAXIS
     Dates: start: 20030103, end: 20030326
  4. RAMIPRIL TABLETS (NR) [Suspect]
     Indication: PROPHYLAXIS
     Dates: start: 20030103, end: 20030326
  5. ISORDIL [Concomitant]
  6. ISOPTIN [Concomitant]
  7. ASPENT (ACETYLSALICYLIC ACID) [Concomitant]
  8. METFORMIN HCL [Concomitant]
  9. VITAMIN B COMPLEX (B-KOMPLEX ^LECIVA^) (NR) [Concomitant]
  10. FOLIC ACID [Concomitant]

REACTIONS (2)
  - ESCHERICHIA URINARY TRACT INFECTION [None]
  - HYPOTENSION [None]
